FAERS Safety Report 24157775 (Version 1)
Quarter: 2024Q3

REPORT INFORMATION
  Report Type: Spontaneous
  Country: US (occurrence: None)
  Receive Date: 20240731
  Receipt Date: 20240731
  Transmission Date: 20241017
  Serious: Yes (Hospitalization)
  Sender: Public
  Company Number: None

PATIENT
  Sex: Female

DRUGS (9)
  1. LENALIDOMIDE [Suspect]
     Active Substance: LENALIDOMIDE
     Indication: Plasma cell myeloma
     Dosage: FREQUENCY : AS DIRECTED;?
     Route: 048
     Dates: start: 20240711
  2. ACETAMINOPHEN TAB 500MG [Concomitant]
  3. ALBUTEROL AER HFA [Concomitant]
  4. ALLEGRA D-12 HOUR [Concomitant]
     Active Substance: FEXOFENADINE HYDROCHLORIDE\PSEUDOEPHEDRINE HYDROCHLORIDE
  5. BIOTIN TAB 10MG [Concomitant]
  6. CENTRUM TAB SILVER [Concomitant]
  7. CITRACAL TAB MAX PLUS [Concomitant]
  8. DARZALEX SOL FASPRO [Concomitant]
  9. DEXAMETHASONE [Concomitant]
     Active Substance: DEXAMETHASONE

REACTIONS (2)
  - Hospitalisation [None]
  - Intentional dose omission [None]
